FAERS Safety Report 13447604 (Version 1)
Quarter: 2017Q2

REPORT INFORMATION
  Report Type: Report from Study
  Country: CA (occurrence: CA)
  Receive Date: 20170417
  Receipt Date: 20170417
  Transmission Date: 20170830
  Serious: Yes (Other)
  Sender: FDA-Public Use
  Company Number: CA-GLAXOSMITHKLINE-CA2017GSK053339

PATIENT
  Age: 62 Year
  Sex: Female

DRUGS (7)
  1. XOLAIR [Suspect]
     Active Substance: OMALIZUMAB
     Indication: ASTHMA
     Dosage: 150 MG, EVERY 4 WEEKS
     Route: 058
     Dates: start: 20130819
  2. SINGULAIR [Concomitant]
     Active Substance: MONTELUKAST SODIUM
  3. SYMBICORT [Concomitant]
     Active Substance: BUDESONIDE\FORMOTEROL FUMARATE DIHYDRATE
  4. CORTISONE ACETATE. [Suspect]
     Active Substance: CORTISONE ACETATE
     Indication: BRONCHOSPASM
  5. CORTISONE ACETATE. [Suspect]
     Active Substance: CORTISONE ACETATE
     Indication: INFLUENZA
  6. DICLOFENAC SODIUM. [Suspect]
     Active Substance: DICLOFENAC SODIUM
  7. PREDNISONE. [Concomitant]
     Active Substance: PREDNISONE

REACTIONS (11)
  - Forced expiratory volume decreased [Unknown]
  - Forced expiratory volume abnormal [Unknown]
  - Influenza [Unknown]
  - Systolic hypertension [Unknown]
  - Paraesthesia [Recovering/Resolving]
  - Ocular hyperaemia [Unknown]
  - Dyspnoea exertional [Unknown]
  - Insomnia [Unknown]
  - Skin disorder [Unknown]
  - Eye disorder [Unknown]
  - Bronchospasm [Recovering/Resolving]

NARRATIVE: CASE EVENT DATE: 201501
